FAERS Safety Report 4305440-7 (Version None)
Quarter: 2004Q1

REPORT INFORMATION
  Report Type: 
  Country: None (occurrence: None)
  Receive Date: 20040226
  Receipt Date: 20031215
  Transmission Date: 20041129
  Serious: No
  Sender: FDA-Public Use
  Company Number: US-BRISTOL-MYERS SQUIBB COMPANY-12458733

PATIENT
  Age: 47 Year
  Sex: Female

DRUGS (3)
  1. TAXOL [Suspect]
     Indication: BREAST CANCER
     Route: 042
     Dates: start: 20021201, end: 20030901
  2. LEUPRORELIN [Concomitant]
     Dates: start: 20021201
  3. INCADRONATE [Concomitant]
     Dates: start: 20021201

REACTIONS (3)
  - NAIL BED TENDERNESS [None]
  - NAIL DISCOLOURATION [None]
  - NAIL DISORDER [None]
